FAERS Safety Report 9587611 (Version 2)
Quarter: 2013Q4

REPORT INFORMATION
  Report Type: Report from Study
  Country: US (occurrence: US)
  Receive Date: 20131003
  Receipt Date: 20131202
  Transmission Date: 20140711
  Serious: Yes (Hospitalization)
  Sender: FDA-Public Use
  Company Number: US-ELI_LILLY_AND_COMPANY-US201309007979

PATIENT
  Age: 67 Year
  Sex: Female
  Weight: 65.31 kg

DRUGS (11)
  1. GEMCITABINE HYDROCHLORIDE [Suspect]
     Indication: PANCREATIC CARCINOMA
     Dosage: 1000 MG/M2, DAY 1, 8, 15 OF 28 DAY CYCLE
     Route: 042
     Dates: start: 20130110, end: 20130912
  2. GEMCITABINE HYDROCHLORIDE [Suspect]
     Dosage: 1000 MG/M2, OTHER
     Dates: start: 20131002
  3. OTHER PHARMA COMPANY INV DRUG [Suspect]
     Indication: PANCREATIC CARCINOMA
     Dosage: 1 MG/KG, UNK
     Dates: start: 20130104, end: 20130814
  4. LANTUS [Concomitant]
     Indication: DIABETES MELLITUS
     Dosage: 10 U, QD
     Route: 058
  5. JANUVIA [Concomitant]
     Indication: DIABETES MELLITUS
     Dosage: 100 MG, QD
     Route: 048
     Dates: start: 201203
  6. AMARYL [Concomitant]
     Indication: DIABETES MELLITUS
     Dosage: 4 MG, QD
     Route: 048
     Dates: start: 201203
  7. LIPITOR [Concomitant]
     Indication: HYPERLIPIDAEMIA
     Dosage: 10 MG, QD
     Route: 048
     Dates: start: 201204
  8. BYSTOLIC [Concomitant]
     Indication: HYPERTENSION
     Dosage: 2.5 MG, QD
     Route: 048
     Dates: start: 201102
  9. LEVOTHYROXINE [Concomitant]
  10. TACROLIMUS [Concomitant]
  11. TRIMETHOPRIM SULFA [Concomitant]

REACTIONS (1)
  - Dehydration [Recovered/Resolved]
